FAERS Safety Report 4414365-8 (Version None)
Quarter: 2004Q3

REPORT INFORMATION
  Report Type: 
  Country: None (occurrence: None)
  Receive Date: 20040701
  Receipt Date: 20040309
  Transmission Date: 20050211
  Serious: Yes (Hospitalization)
  Sender: FDA-Public Use
  Company Number: VISP-PR-0403S-0104(0)

PATIENT
  Age: 66 Year
  Sex: Male

DRUGS (10)
  1. VISIPAQUE [Suspect]
     Indication: RENAL ARTERY STENOSIS
     Dosage: , SINGLE DOSE, I.A.
     Route: 014
     Dates: start: 20031103, end: 20031103
  2. ANGIOMAX [Concomitant]
  3. ACETYLCYSTEINE [Concomitant]
  4. AMLODIPINE BESYLATE [Concomitant]
  5. MAGNESIUM OXIDE [Concomitant]
  6. METOPROLOL TARTRATE [Concomitant]
  7. NICOTINE [Concomitant]
  8. TERAZOSIN HYDROCHLORIDE [Concomitant]
  9. THERAGENERIX [Concomitant]
  10. ACETYLSALICYLIC ACID [Concomitant]

REACTIONS (1)
  - BLOOD CREATININE INCREASED [None]
